FAERS Safety Report 9457567 (Version 1)
Quarter: 2013Q3

REPORT INFORMATION
  Report Type: Report from Study
  Country: US (occurrence: US)
  Receive Date: 20130814
  Receipt Date: 20130814
  Transmission Date: 20140515
  Serious: No
  Sender: FDA-Public Use
  Company Number: US-009507513-1308USA001710

PATIENT
  Age: 69 Year
  Sex: Male

DRUGS (4)
  1. SINEMET [Suspect]
     Indication: PARKINSON^S DISEASE
     Dosage: 25/100, TID
     Route: 048
  2. AMPYRA [Suspect]
     Indication: GAIT DISTURBANCE
     Dosage: 10 MG, BID
     Route: 048
     Dates: start: 20130318, end: 20130401
  3. AZILECT [Suspect]
     Indication: PRODUCT USED FOR UNKNOWN INDICATION
     Dosage: 1 MG, QD
     Route: 048
  4. PRIMIDONE [Suspect]
     Indication: PRODUCT USED FOR UNKNOWN INDICATION
     Dosage: 50 MG, BID
     Route: 048

REACTIONS (3)
  - Tremor [Recovered/Resolved]
  - Balance disorder [Recovered/Resolved]
  - Gait disturbance [Recovered/Resolved]
